FAERS Safety Report 7087492-7 (Version None)
Quarter: 2010Q4

REPORT INFORMATION
  Report Type: 
  Country: None (occurrence: None)
  Receive Date: 20101108
  Receipt Date: 20101027
  Transmission Date: 20110411
  Serious: No
  Sender: FDA-Public Use
  Company Number: US-BIOGENIDEC-2010BI038033

PATIENT
  Age: 51 Year
  Sex: Female

DRUGS (2)
  1. TYSABRI [Suspect]
     Indication: MULTIPLE SCLEROSIS
     Route: 042
     Dates: start: 20090830, end: 20091118
  2. TYSABRI [Suspect]
     Route: 042
     Dates: start: 20100430

REACTIONS (3)
  - COUGH [None]
  - DYSPHONIA [None]
  - STRESS [None]
